FAERS Safety Report 4674986-4 (Version None)
Quarter: 2005Q2

REPORT INFORMATION
  Report Type: 
  Country: None (occurrence: None)
  Receive Date: 20050526
  Receipt Date: 20050513
  Transmission Date: 20051028
  Serious: Yes (Other)
  Sender: FDA-Public Use
  Company Number: GBWYE665613MAY05

PATIENT
  Age: 67 Year
  Sex: Female
  Weight: 77 kg

DRUGS (8)
  1. ENBREL [Suspect]
     Indication: RHEUMATOID ARTHRITIS
     Route: 058
     Dates: start: 20050121
  2. FUROSEMIDE [Concomitant]
     Dosage: 40MG FREQUENCY UNKNOWN
     Route: 048
  3. LANSOPRAZOLE [Concomitant]
     Dosage: 15MG FREQUENCY UNKNOWN
     Route: 048
  4. PERINDOPRIL [Concomitant]
     Dosage: 40MG FREQUENCY UNKNOWN
     Route: 048
  5. DIGOXIN [Concomitant]
     Dosage: 250MCG FREQUENCY UNKNOWN
     Route: 048
  6. ISOSORBIDE MONONITRATE [Concomitant]
     Dosage: UNKNOWN
  7. VOLTAROL [Concomitant]
     Dosage: UNKNOWN
  8. METHOTREXATE [Concomitant]
     Route: 065
     Dates: start: 19920101

REACTIONS (1)
  - DIABETES MELLITUS NON-INSULIN-DEPENDENT [None]
